FAERS Safety Report 13476694 (Version 1)
Quarter: 2017Q2

REPORT INFORMATION
  Report Type: Spontaneous
  Country: CN (occurrence: CN)
  Receive Date: 20170425
  Receipt Date: 20170425
  Transmission Date: 20170830
  Serious: Yes (Hospitalization)
  Sender: FDA-Public Use
  Company Number: CN-NOVOPROD-541273

PATIENT
  Age: 79 Year
  Sex: Male

DRUGS (3)
  1. NOVOMIX 30 PENFILL [Suspect]
     Active Substance: INSULIN ASPART
     Dosage: 34 U, QD (14 U IN THE MORNING, 10 U AT NOON AND 10 U IN THE EVENING)
     Route: 058
  2. NOVOMIX 30 PENFILL [Suspect]
     Active Substance: INSULIN ASPART
     Indication: DIABETES MELLITUS
     Dosage: 36 U, QD (14 U IN THE MORNING, 10 U AT NOON AND 12 U IN THE EVENING)
     Route: 058
     Dates: start: 19970101
  3. GLUCOBAY [Suspect]
     Active Substance: ACARBOSE
     Indication: DIABETES MELLITUS
     Dosage: 50 MG, TID
     Route: 048
     Dates: start: 19970101

REACTIONS (3)
  - Palpitations [Recovered/Resolved]
  - Hypoglycaemia [Recovering/Resolving]
  - Hyperhidrosis [Recovered/Resolved]

NARRATIVE: CASE EVENT DATE: 20170117
